FAERS Safety Report 6228257-5 (Version None)
Quarter: 2009Q2

REPORT INFORMATION
  Report Type: 
  Country: None (occurrence: None)
  Receive Date: 20090612
  Receipt Date: 20090601
  Transmission Date: 20091009
  Serious: Yes (Other)
  Sender: FDA-Public Use
  Company Number: PHHY2009JP16136

PATIENT
  Sex: Female
  Weight: 51 kg

DRUGS (12)
  1. DIOVAN HCT [Suspect]
     Indication: HYPERTENSION
     Dosage: 80/12.5 MG
     Route: 048
     Dates: start: 20090403
  2. MAO-TO [Suspect]
     Dosage: 7.5 G/DAY
     Route: 048
     Dates: start: 20090403, end: 20090408
  3. ASPENON [Concomitant]
     Dosage: 20 MG, UNK
     Route: 048
     Dates: start: 20090327
  4. PARIET [Concomitant]
     Dosage: 10 MG, UNK
     Route: 048
     Dates: start: 20090327
  5. WARFARIN SODIUM [Concomitant]
     Dosage: 2.5 MG, UNK
     Route: 048
     Dates: start: 20090327
  6. CORINAEL [Concomitant]
     Dosage: 20 MG
     Route: 048
     Dates: start: 20090403
  7. CORINAEL [Concomitant]
     Dosage: 40 MG, UNK
     Route: 048
     Dates: start: 20090403
  8. CORINAEL [Concomitant]
     Dosage: 20 MG, UNK
     Route: 048
     Dates: start: 20090417
  9. LAMISIL [Concomitant]
     Dosage: UNK
     Route: 061
     Dates: start: 20090319
  10. GRACEVIT [Concomitant]
     Dosage: 100 MG, UNK
     Route: 048
     Dates: start: 20090409, end: 20090417
  11. BIOFERMIN R [Concomitant]
     Dosage: 12 MG, UNK
     Route: 048
     Dates: start: 20090409, end: 20090413
  12. CALONAL [Concomitant]
     Dosage: 800 MG, UNK
     Route: 048
     Dates: start: 20090403, end: 20090410

REACTIONS (9)
  - ANOREXIA [None]
  - BLOOD POTASSIUM DECREASED [None]
  - BLOOD SODIUM DECREASED [None]
  - C-REACTIVE PROTEIN INCREASED [None]
  - INFLUENZA [None]
  - LYMPHOCYTE COUNT DECREASED [None]
  - NEUTROPHIL COUNT INCREASED [None]
  - PSEUDOALDOSTERONISM [None]
  - PYREXIA [None]
